FAERS Safety Report 7748487-0 (Version None)
Quarter: 2011Q3

REPORT INFORMATION
  Report Type: 
  Country: None (occurrence: None)
  Receive Date: 20110914
  Receipt Date: 20110906
  Transmission Date: 20111222
  Serious: No
  Sender: FDA-Public Use
  Company Number: US-BIOGENIDEC-2010BI003738

PATIENT
  Sex: Male

DRUGS (4)
  1. TYSABRI [Suspect]
     Indication: MULTIPLE SCLEROSIS
     Route: 042
     Dates: start: 20091209
  2. ASPIRIN [Concomitant]
     Indication: THROMBOSIS PROPHYLAXIS
  3. WELLBUTRIN [Concomitant]
     Indication: DEPRESSION
  4. ZOCOR [Concomitant]
     Indication: BLOOD CHOLESTEROL INCREASED

REACTIONS (22)
  - SKIN HAEMORRHAGE [None]
  - HYPOAESTHESIA [None]
  - GENERAL SYMPTOM [None]
  - INITIAL INSOMNIA [None]
  - FATIGUE [None]
  - DRY MOUTH [None]
  - SENSORY DISTURBANCE [None]
  - JOINT STIFFNESS [None]
  - PAIN IN EXTREMITY [None]
  - SKIN INFECTION [None]
  - PAIN [None]
  - EYE MOVEMENT DISORDER [None]
  - DENTAL CARIES [None]
  - HEADACHE [None]
  - COAGULOPATHY [None]
  - ARTHRITIS [None]
  - SLEEP DISORDER [None]
  - SKIN IRRITATION [None]
  - CYST [None]
  - URINARY TRACT INFECTION [None]
  - LACERATION [None]
  - GAIT DISTURBANCE [None]
